FAERS Safety Report 9667821 (Version 1)
Quarter: 2013Q4

REPORT INFORMATION
  Report Type: Spontaneous
  Country: US (occurrence: US)
  Receive Date: 20131104
  Receipt Date: 20131104
  Transmission Date: 20140711
  Serious: No
  Sender: FDA-Public Use
  Company Number: US-009507513-1310USA012572

PATIENT
  Age: 51 Year
  Sex: Female

DRUGS (1)
  1. JANUVIA [Suspect]
     Indication: BLOOD GLUCOSE
     Dosage: UNK
     Route: 048
     Dates: start: 201305

REACTIONS (6)
  - Feeling jittery [Unknown]
  - Headache [Unknown]
  - Anxiety [Unknown]
  - Hunger [Unknown]
  - Asthenia [Unknown]
  - Fatigue [Unknown]
